FAERS Safety Report 9453950 (Version 2)
Quarter: 2014Q2

REPORT INFORMATION
  Report Type: Spontaneous
  Country: US (occurrence: US)
  Receive Date: 20130812
  Receipt Date: 20140421
  Transmission Date: 20141212
  Serious: Yes (Hospitalization)
  Sender: FDA-Public Use
  Company Number: US-BAYER-2013-094763

PATIENT
  Age: 31 Year
  Sex: Female
  Weight: 123.36 kg

DRUGS (3)
  1. YASMIN [Suspect]
     Dosage: UNK
     Dates: start: 20020913, end: 201106
  2. OCELLA [Suspect]
     Dosage: UNK
     Dates: start: 20020913, end: 201106
  3. PROAIR HFA [Concomitant]
     Dosage: UNK

REACTIONS (6)
  - Spleen disorder [None]
  - Injury [None]
  - Pain [None]
  - Emotional distress [None]
  - Anxiety [None]
  - Psychological trauma [None]
